FAERS Safety Report 4932222-5 (Version None)
Quarter: 2006Q1

REPORT INFORMATION
  Report Type: 
  Country: None (occurrence: None)
  Receive Date: 20060228
  Receipt Date: 20060216
  Transmission Date: 20060701
  Serious: Yes (Other)
  Sender: FDA-Public Use
  Company Number: 2006017784

PATIENT
  Age: 64 Year
  Sex: Male

DRUGS (3)
  1. HALCION [Suspect]
     Indication: INSOMNIA
     Dosage: 0.25 MG, ORAL
     Route: 048
  2. LIPOVAS ^BANYU^ (SIMVASTATIN) [Concomitant]
  3. LOXONIN (LOXOPROFEN SODIUM) [Concomitant]

REACTIONS (5)
  - HEPATIC NEOPLASM MALIGNANT [None]
  - METASTASES TO SPINE [None]
  - MUSCLE SPASMS [None]
  - NIGHTMARE [None]
  - SPINAL DISORDER [None]
